FAERS Safety Report 5179788-0 (Version None)
Quarter: 2006Q4

REPORT INFORMATION
  Report Type: 
  Country: None (occurrence: None)
  Receive Date: 20061219
  Receipt Date: 20061213
  Transmission Date: 20070319
  Serious: Yes (Other)
  Sender: FDA-Public Use
  Company Number: GB-MERCK-0612GBR00072

PATIENT
  Age: 44 Year
  Sex: Female

DRUGS (5)
  1. ZOCOR [Suspect]
     Indication: BLOOD CHOLESTEROL INCREASED
     Route: 048
     Dates: start: 20060508, end: 20060101
  2. ZOCOR [Suspect]
     Route: 048
     Dates: start: 20060101, end: 20060101
  3.  [Concomitant]
     Indication: PROPHYLAXIS
     Route: 048
     Dates: start: 20040816
  4.  [Concomitant]
     Indication: DIABETES MELLITUS
     Route: 058
     Dates: start: 20030916, end: 20060501
  5.  [Concomitant]
     Route: 058
     Dates: start: 20030916, end: 20060501

REACTIONS (1)
  - HYPERGLYCAEMIA [None]
